FAERS Safety Report 8439893-X (Version None)
Quarter: 2012Q2

REPORT INFORMATION
  Report Type: 
  Country: None (occurrence: None)
  Receive Date: 20120615
  Receipt Date: 20120611
  Transmission Date: 20120825
  Serious: Yes (Life-Threatening)
  Sender: FDA-Public Use
  Company Number: JP-ASTRAZENECA-2012SE39125

PATIENT
  Age: 60 Year

DRUGS (1)
  1. FELODIPINE [Suspect]
     Dosage: 140 MG (5 MG X 28 TABLET)
     Route: 048

REACTIONS (2)
  - HYPOTENSION [None]
  - OVERDOSE [None]
